FAERS Safety Report 9265003 (Version 3)
Quarter: 2013Q3

REPORT INFORMATION
  Report Type: Spontaneous
  Country: US (occurrence: US)
  Receive Date: 20130501
  Receipt Date: 20130924
  Transmission Date: 20140515
  Serious: No
  Sender: FDA-Public Use
  Company Number: US-009507513-1304USA008504

PATIENT
  Age: 46 Year
  Sex: Male

DRUGS (7)
  1. TIMOPTIC [Suspect]
     Indication: INTRAOCULAR PRESSURE INCREASED
     Dosage: UNK
     Route: 047
     Dates: start: 19851025, end: 19961216
  2. TIMOPTIC [Suspect]
     Indication: GLAUCOMA
  3. PILOCARPINE [Concomitant]
     Indication: GLAUCOMA
     Dosage: UNK, QD
     Route: 047
     Dates: start: 19861209, end: 19951106
  4. PILOCARPINE [Concomitant]
     Indication: GLAUCOMA
     Dosage: UNK UNK, QID
     Route: 047
     Dates: start: 19940525, end: 19951106
  5. TRUSOPT [Concomitant]
     Indication: GLAUCOMA
     Dosage: UNK, TID
     Route: 047
     Dates: start: 19951106
  6. ALPHAGAN [Concomitant]
     Indication: GLAUCOMA
     Dosage: UNK, TID
     Dates: start: 19961216, end: 19961223
  7. XALATAN [Concomitant]
     Indication: GLAUCOMA
     Dosage: UNK, HS
     Dates: start: 19870108, end: 19920109

REACTIONS (3)
  - Cataract [Recovered/Resolved]
  - Cataract operation [Unknown]
  - Dizziness [Not Recovered/Not Resolved]
